FAERS Safety Report 16832183 (Version 2)
Quarter: 2019Q3

REPORT INFORMATION
  Report Type: Spontaneous
  Country: GB (occurrence: GB)
  Receive Date: 20190920
  Receipt Date: 20190924
  Transmission Date: 20191005
  Serious: Yes (Other)
  Sender: FDA-Public Use
  Company Number: GB-PFIZER INC-2019391185

PATIENT
  Age: 35 Year
  Sex: Male

DRUGS (2)
  1. CABERGOLINE. [Suspect]
     Active Substance: CABERGOLINE
     Indication: PROLACTIN-PRODUCING PITUITARY TUMOUR
     Dosage: 500 UG, 2X/WEEK
  2. CABERGOLINE. [Suspect]
     Active Substance: CABERGOLINE
     Dosage: 250 UG, 2X/WEEK

REACTIONS (1)
  - Cerebrospinal fluid leakage [Recovering/Resolving]
